FAERS Safety Report 5167559-0 (Version None)
Quarter: 2006Q4

REPORT INFORMATION
  Report Type: 
  Country: None (occurrence: None)
  Receive Date: 20061207
  Receipt Date: 20061204
  Transmission Date: 20070319
  Serious: Yes (Other)
  Sender: FDA-Public Use
  Company Number: US-ALLERGAN-0608229US

PATIENT
  Age: 77 Year
  Sex: Male

DRUGS (1)
  1. BOTOX [Suspect]
     Indication: OESOPHAGEAL ACHALASIA
     Dosage: 100 UNITS, SINGLE
     Route: 030

REACTIONS (1)
  - LIVER ABSCESS [None]
